FAERS Safety Report 18302598 (Version 3)
Quarter: 2020Q4

REPORT INFORMATION
  Report Type: Report from Study
  Country: CA (occurrence: CA)
  Receive Date: 20200923
  Receipt Date: 20201222
  Transmission Date: 20210113
  Serious: Yes (Other)
  Sender: FDA-Public Use
  Company Number: PHHY2018CA010056

PATIENT
  Sex: Male

DRUGS (6)
  1. COSENTYX [Suspect]
     Active Substance: SECUKINUMAB
     Dosage: 600 MG, QMO
     Route: 058
     Dates: start: 20181101
  2. COSENTYX [Suspect]
     Active Substance: SECUKINUMAB
     Dosage: 600 MG, QMO
     Route: 058
     Dates: start: 20190601
  3. COSENTYX [Suspect]
     Active Substance: SECUKINUMAB
     Indication: PSORIASIS
     Dosage: 600 MG, QMO
     Route: 058
     Dates: start: 20180201
  4. COSENTYX [Suspect]
     Active Substance: SECUKINUMAB
     Dosage: 600 MG, QMO
     Route: 058
     Dates: start: 2019
  5. COSENTYX [Suspect]
     Active Substance: SECUKINUMAB
     Dosage: 600 MG, QMO
     Route: 058
     Dates: start: 20181204
  6. COSENTYX [Suspect]
     Active Substance: SECUKINUMAB
     Dosage: 300 MG, QMO
     Route: 058
     Dates: start: 2018

REACTIONS (6)
  - Pruritus [Unknown]
  - Eczema [Unknown]
  - Drug ineffective [Unknown]
  - Psoriasis [Unknown]
  - Product prescribing error [Unknown]
  - Diabetes mellitus inadequate control [Unknown]

NARRATIVE: CASE EVENT DATE: 2018
